FAERS Safety Report 8229287 (Version 4)
Quarter: 2013Q3

REPORT INFORMATION
  Report Type: Report from Study
  Country: US (occurrence: US)
  Receive Date: 20111104
  Receipt Date: 20130902
  Transmission Date: 20140515
  Serious: Yes (Death, Hospitalization, Other)
  Sender: FDA-Public Use
  Company Number: US-BRISTOL-MYERS SQUIBB COMPANY-16207656

PATIENT
  Age: 68 Year
  Sex: Female
  Weight: 47.9 kg

DRUGS (1)
  1. ERBITUX [Suspect]
     Indication: ANAL CANCER
     Dosage: NO OF COURSES:2?25AP11
     Dates: start: 20110314, end: 20110425

REACTIONS (11)
  - Renal failure acute [Fatal]
  - Hyperglycaemia [Unknown]
  - Hypoalbuminaemia [Unknown]
  - Fatigue [Unknown]
  - Dehydration [Recovered/Resolved]
  - Diarrhoea [Recovered/Resolved]
  - Metabolic acidosis [Recovered/Resolved]
  - Embolism [Recovered/Resolved]
  - Infection [Recovered/Resolved]
  - Pneumonitis [Recovered/Resolved]
  - Thrombocytopenia [Unknown]
